FAERS Safety Report 21049631 (Version 2)
Quarter: 2022Q3

REPORT INFORMATION
  Report Type: Spontaneous
  Country: MY (occurrence: MY)
  Receive Date: 20220706
  Receipt Date: 20220711
  Transmission Date: 20221027
  Serious: Yes (Other)
  Sender: FDA-Public Use
  Company Number: MY-MYLANLABS-2022M1050046

PATIENT
  Age: 47 Year
  Sex: Female

DRUGS (1)
  1. PACLITAXEL [Suspect]
     Active Substance: PACLITAXEL
     Indication: Ovarian cancer
     Dosage: 260 MILLIGRAM, QD
     Route: 041

REACTIONS (2)
  - Burning sensation [Recovered/Resolved]
  - Chest discomfort [Recovered/Resolved]
